FAERS Safety Report 23328788 (Version 4)
Quarter: 2024Q2

REPORT INFORMATION
  Report Type: Spontaneous
  Country: US (occurrence: US)
  Receive Date: 20231221
  Receipt Date: 20240424
  Transmission Date: 20240716
  Serious: Yes (Hospitalization)
  Sender: FDA-Public Use
  Company Number: US-VIIV HEALTHCARE LIMITED-US2023AMR177156

PATIENT
  Sex: Female

DRUGS (3)
  1. RILPIVIRINE [Suspect]
     Active Substance: RILPIVIRINE
     Indication: HIV infection
     Dosage: UNK UNK, Q2M, (600/900MG)
     Route: 030
     Dates: start: 20230925
  2. CABOTEGRAVIR [Suspect]
     Active Substance: CABOTEGRAVIR
     Indication: HIV infection
     Dosage: UNK UNK, Q2M, (600/900MG)
     Route: 030
     Dates: start: 20230925
  3. SEROSTIM [Concomitant]
     Active Substance: SOMATROPIN
     Indication: Product used for unknown indication

REACTIONS (1)
  - Hospitalisation [Unknown]
